FAERS Safety Report 23441004 (Version 1)
Quarter: 2024Q1

REPORT INFORMATION
  Report Type: Spontaneous
  Country: IT (occurrence: IT)
  Receive Date: 20240125
  Receipt Date: 20240125
  Transmission Date: 20240410
  Serious: Yes (Other)
  Sender: FDA-Public Use
  Company Number: IT-MINISAL02-947099

PATIENT
  Age: 73 Year
  Sex: Male
  Weight: 79 kg

DRUGS (3)
  1. OXALIPLATIN [Suspect]
     Active Substance: OXALIPLATIN
     Indication: Hepatic neoplasm
     Dosage: 260 MILLIGRAM
     Route: 065
     Dates: start: 20230807, end: 20230807
  2. BEVACIZUMAB [Suspect]
     Active Substance: BEVACIZUMAB
     Indication: Hepatic neoplasm
     Dosage: 600 MILLIGRAM
     Route: 065
     Dates: start: 20230807, end: 20230807
  3. CAPECITABINE [Suspect]
     Active Substance: CAPECITABINE
     Indication: Hepatic neoplasm
     Dosage: 3000 MILLIGRAM, QD
     Route: 048
     Dates: start: 20230808, end: 20230821

REACTIONS (2)
  - Off label use [Recovering/Resolving]
  - Nausea [Recovering/Resolving]

NARRATIVE: CASE EVENT DATE: 20230808
